FAERS Safety Report 14544381 (Version 19)
Quarter: 2023Q2

REPORT INFORMATION
  Report Type: Report from Study
  Country: DE (occurrence: DE)
  Receive Date: 20180216
  Receipt Date: 20230417
  Transmission Date: 20230722
  Serious: Yes (Hospitalization, Other)
  Sender: FDA-Public Use
  Company Number: DE-BRISTOL-MYERS SQUIBB COMPANY-BMS-2017-121048

PATIENT
  Age: 68 Year
  Sex: Male
  Weight: 105 kg

DRUGS (80)
  1. NIVOLUMAB [Suspect]
     Active Substance: NIVOLUMAB
     Indication: Lung neoplasm malignant
     Dosage: 1 DF, Q3WK?[TOTAL NIVOLUMAB DOSE DELIVERED DURING THIS INFUSION]: 106
     Dates: start: 20170816, end: 20170816
  2. NIVOLUMAB [Suspect]
     Active Substance: NIVOLUMAB
     Indication: Malignant melanoma
     Dosage: 1 DF, Q3WK?TOTAL NIVOLUMAB DOSE DELIVERED DURING THIS INFUSION]: 102
     Dates: start: 20170918, end: 20170918
  3. NIVOLUMAB [Suspect]
     Active Substance: NIVOLUMAB
     Dosage: 1 DF, Q3WK?TOTAL NIVOLUMAB DOSE DELIVERED DURING THIS INFUSION]: 104
     Dates: start: 20171010, end: 20171010
  4. NIVOLUMAB [Suspect]
     Active Substance: NIVOLUMAB
     Dosage: 1 DF, Q2WK?TOTAL NIVOLUMAB DOSE DELIVERED DURING THIS INFUSION]: 300
     Dates: start: 20171103, end: 20171103
  5. NIVOLUMAB [Suspect]
     Active Substance: NIVOLUMAB
     Dosage: 1 DF, Q2WK ?TOTAL NIVOLUMAB DOSE DELIVERED DURING THIS INFUSION]: 291
     Dates: start: 20171204, end: 20171204
  6. NIVOLUMAB [Suspect]
     Active Substance: NIVOLUMAB
     Dosage: 1 DF, Q2WK?TOTAL NIVOLUMAB DOSE DELIVERED DURING THIS INFUSION]: 291
     Dates: start: 20171215, end: 20171215
  7. NIVOLUMAB [Suspect]
     Active Substance: NIVOLUMAB
     Dosage: 1 DF, Q2WK?TOTAL NIVOLUMAB DOSE DELIVERED DURING THIS INFUSION]: 300
     Dates: start: 20180209, end: 20180209
  8. NIVOLUMAB [Suspect]
     Active Substance: NIVOLUMAB
     Dosage: 1 DF, Q2WK?TOTAL NIVOLUMAB DOSE DELIVERED DURING THIS INFUSION]: 312
     Dates: start: 20180223, end: 20180223
  9. NIVOLUMAB [Suspect]
     Active Substance: NIVOLUMAB
     Dosage: 1 DF, Q2WK?TOTAL NIVOLUMAB DOSE DELIVERED DURING THIS INFUSION]: 315
     Dates: start: 20180308, end: 20180308
  10. NIVOLUMAB [Suspect]
     Active Substance: NIVOLUMAB
     Dosage: 1 DF, Q2WK?TOTAL NIVOLUMAB DOSE DELIVERED DURING THIS INFUSION]: 309
     Dates: start: 20180326, end: 20180326
  11. NIVOLUMAB [Suspect]
     Active Substance: NIVOLUMAB
     Dosage: 1 DF, Q2WK?TOTAL NIVOLUMAB DOSE DELIVERED DURING THIS INFUSION]: 300
     Dates: start: 20180410, end: 20180410
  12. NIVOLUMAB [Suspect]
     Active Substance: NIVOLUMAB
     Dosage: 1 DF, Q2WK?TOTAL NIVOLUMAB DOSE DELIVERED DURING THIS INFUSION]: 300
     Dates: start: 20180508, end: 20180508
  13. NIVOLUMAB [Suspect]
     Active Substance: NIVOLUMAB
     Dosage: 1 DF, Q2WK?TOTAL NIVOLUMAB DOSE DELIVERED DURING THIS INFUSION]: 300
     Dates: start: 20180424, end: 20180424
  14. NIVOLUMAB [Suspect]
     Active Substance: NIVOLUMAB
     Dosage: 1 DF, Q2WK?TOTAL NIVOLUMAB DOSE DELIVERED DURING THIS INFUSION]: 288
     Dates: start: 20180522, end: 20180522
  15. NIVOLUMAB [Suspect]
     Active Substance: NIVOLUMAB
     Dosage: 1 DF, Q2WK?TOTAL NIVOLUMAB DOSE DELIVERED DURING THIS INFUSION]: 240
     Dates: start: 20180606, end: 20180619
  16. NIVOLUMAB [Suspect]
     Active Substance: NIVOLUMAB
     Dosage: 1 DF, Q2WK, 1 DF=240 UNITS NOS
     Dates: start: 20180702, end: 20180702
  17. NIVOLUMAB [Suspect]
     Active Substance: NIVOLUMAB
     Dosage: 1 DF, Q2WK?TOTAL NIVOLUMAB DOSE DELIVERED DURING THIS INFUSION]: 240
     Dates: start: 20180718, end: 20180718
  18. NIVOLUMAB [Suspect]
     Active Substance: NIVOLUMAB
     Dosage: 1 DF, Q2WK?TOTAL NIVOLUMAB DOSE DELIVERED DURING THIS INFUSION]: 240
     Dates: start: 20180803, end: 20180803
  19. NIVOLUMAB [Suspect]
     Active Substance: NIVOLUMAB
     Dosage: 1 DF, Q4WK?TOTAL NIVOLUMAB DOSE DELIVERED DURING THIS INFUSION]: 480
     Dates: start: 20180829, end: 20180829
  20. NIVOLUMAB [Suspect]
     Active Substance: NIVOLUMAB
     Dosage: 1 DF, Q4WK?TOTAL NIVOLUMAB DOSE DELIVERED DURING THIS INFUSION]: 480
     Dates: start: 20180926, end: 20180926
  21. NIVOLUMAB [Suspect]
     Active Substance: NIVOLUMAB
     Dosage: 1 DF, Q4WK?TOTAL NIVOLUMAB DOSE DELIVERED DURING THIS INFUSION]: 480
     Dates: start: 20181024, end: 20181024
  22. NIVOLUMAB [Suspect]
     Active Substance: NIVOLUMAB
     Dosage: 1 DF, Q4WK?TOTAL NIVOLUMAB DOSE DELIVERED DURING THIS INFUSION]: 480
     Dates: start: 20181024, end: 20190116
  23. NIVOLUMAB [Suspect]
     Active Substance: NIVOLUMAB
     Dosage: 1 DF, Q4WK?TOTAL NIVOLUMAB DOSE DELIVERED DURING THIS INFUSION]: 480
     Dates: start: 20190215, end: 20190215
  24. NIVOLUMAB [Suspect]
     Active Substance: NIVOLUMAB
     Dosage: 1 DOSAGE FORM, Q4WK?TOTAL NIVOLUMAB DOSE DELIVERED DURING THIS INFUSION]: 480
     Dates: start: 20190313, end: 20190313
  25. NIVOLUMAB [Suspect]
     Active Substance: NIVOLUMAB
     Dosage: UNK UNK, Q2WK, 300 (UNSPECIFIED UNITS)
     Dates: start: 20171229, end: 20171229
  26. NIVOLUMAB [Suspect]
     Active Substance: NIVOLUMAB
     Dosage: UNK UNK, Q2WK, 300 (UNSPECIFIED UNITS)
     Dates: start: 20180112, end: 20180112
  27. NIVOLUMAB [Suspect]
     Active Substance: NIVOLUMAB
     Dosage: UNK UNK, Q2WK, 300 (UNSPECIFIED UNITS)
     Dates: start: 20180126, end: 20180126
  28. NIVOLUMAB [Suspect]
     Active Substance: NIVOLUMAB
     Dosage: UNK UNK, Q2WK, 480 (UNSPECIFIED UNITS)?TOTAL NIVOLUMAB DOSE DELIVERED DURING THIS INFUSION]: 480
     Dates: start: 20190410, end: 20190410
  29. NIVOLUMAB [Suspect]
     Active Substance: NIVOLUMAB
     Dosage: UNK UNK, Q4WK, 480 (UNSPECIFIED UNITS)?TOTAL NIVOLUMAB DOSE DELIVERED DURING THIS INFUSION]: 480
     Dates: start: 20190508, end: 20190508
  30. IPILIMUMAB [Suspect]
     Active Substance: IPILIMUMAB
     Indication: Lung neoplasm malignant
     Dosage: 1 DF, Q3WK?TOTAL IPILIMUMAB DOSE DELIVERED DURING THIS INFUSION]: 318
     Dates: start: 20170816, end: 20170816
  31. IPILIMUMAB [Suspect]
     Active Substance: IPILIMUMAB
     Indication: Malignant melanoma
     Dosage: 1 DF, Q3WK?TOTAL IPILIMUMAB DOSE DELIVERED DURING THIS INFUSION]: 306
     Dates: start: 20170918, end: 20170918
  32. IPILIMUMAB [Suspect]
     Active Substance: IPILIMUMAB
     Dosage: 1 DF, Q3WK?TOTAL IPILIMUMAB DOSE DELIVERED DURING THIS INFUSION]: 312
     Dates: start: 20171010, end: 20171010
  33. FINASTERIDE [Concomitant]
     Active Substance: FINASTERIDE
     Indication: Benign prostatic hyperplasia
     Dosage: 5 MG, QD
     Route: 048
     Dates: start: 20161013
  34. POTASSIUM IODIDE [Concomitant]
     Active Substance: POTASSIUM IODIDE
     Indication: Prophylaxis
     Dosage: 200 ?G, UNK
     Route: 048
     Dates: start: 20161013
  35. MAGNESIUM [Concomitant]
     Active Substance: MAGNESIUM
     Indication: Prophylaxis
     Dosage: 500 MG, QD
     Route: 048
     Dates: start: 20161013
  36. ACETAMINOPHEN\CAFFEINE\PROPYPHENAZONE [Concomitant]
     Active Substance: ACETAMINOPHEN\CAFFEINE\PROPYPHENAZONE
     Indication: Lymphadenectomy
     Dosage: 1 DF= 90 DROPS, DAILY
     Route: 048
     Dates: start: 20170823, end: 20170827
  37. ACETAMINOPHEN\CAFFEINE\PROPYPHENAZONE [Concomitant]
     Active Substance: ACETAMINOPHEN\CAFFEINE\PROPYPHENAZONE
     Dosage: 1 DF= 90 DROPS, DAILY
     Route: 048
     Dates: start: 20171013, end: 20171025
  38. CERTOPARIN SODIUM [Concomitant]
     Active Substance: CERTOPARIN SODIUM
     Indication: Thrombosis prophylaxis
     Dosage: 3000 IU, QD
     Route: 048
     Dates: start: 20170823, end: 20170827
  39. CERTOPARIN SODIUM [Concomitant]
     Active Substance: CERTOPARIN SODIUM
     Dosage: 3000 IU, QD
     Route: 058
     Dates: start: 20170831, end: 20170904
  40. PREDNISOLONE [Concomitant]
     Active Substance: PREDNISOLONE
     Indication: Thyroiditis
     Dosage: 100 MG, QD
     Route: 042
     Dates: start: 20170831, end: 20170904
  41. PREDNISOLONE [Concomitant]
     Active Substance: PREDNISOLONE
     Dosage: 100 MG, QD
     Route: 042
     Dates: start: 20171013, end: 20171025
  42. PREDNISOLONE [Concomitant]
     Active Substance: PREDNISOLONE
     Dosage: 40 MILLIGRAM, QD
     Route: 042
     Dates: start: 20190529, end: 20190531
  43. PREDNISOLONE [Concomitant]
     Active Substance: PREDNISOLONE
     Dosage: 20 MILLIGRAM, QD
     Route: 042
     Dates: start: 20190716, end: 20190718
  44. NALOXONE HYDROCHLORIDE\TILIDINE HYDROCHLORIDE [Concomitant]
     Active Substance: NALOXONE HYDROCHLORIDE\TILIDINE HYDROCHLORIDE
     Indication: Thyroiditis
     Dosage: 100 MG, UNK
     Route: 048
     Dates: start: 20170831, end: 20170904
  45. PANTOPRAZOLE [Concomitant]
     Active Substance: PANTOPRAZOLE
     Indication: Prophylaxis
     Dosage: 20 MG, UNK
     Route: 042
     Dates: start: 20170831, end: 20170904
  46. GRANISETRON [Concomitant]
     Active Substance: GRANISETRON
     Indication: Nausea
     Dosage: 4 MILLIGRAM, QD
     Route: 042
     Dates: start: 20170831, end: 20170904
  47. IONOSTERIL [Concomitant]
     Indication: Thyroiditis
     Dosage: 2000 MG, QD
     Route: 042
     Dates: start: 20170831, end: 20170904
  48. CERNEVIT [Concomitant]
     Active Substance: VITAMINS
     Indication: Lymphadenectomy
     Dosage: 1 DF= 1 VIAL, QD
     Route: 042
     Dates: start: 20170831, end: 20170904
  49. CERNEVIT [Concomitant]
     Active Substance: VITAMINS
     Dosage: 1 DF= 7 VIAL, QD
     Route: 042
     Dates: start: 20171013, end: 20171025
  50. ACETAMINOPHEN [Concomitant]
     Active Substance: ACETAMINOPHEN
     Indication: Thyroiditis
     Dosage: 3 MG, QD
     Route: 042
     Dates: start: 20170831, end: 20170904
  51. ACETAMINOPHEN [Concomitant]
     Active Substance: ACETAMINOPHEN
     Dosage: 500 MG, PRN
     Route: 048
     Dates: start: 20170905
  52. ACETAMINOPHEN [Concomitant]
     Active Substance: ACETAMINOPHEN
     Dosage: 500 MILLIGRAM, PRN
     Route: 048
     Dates: start: 20191016
  53. OXYGEN [Concomitant]
     Active Substance: OXYGEN
     Indication: Thyroiditis
     Dosage: 2000 UNK, UNK
     Route: 045
     Dates: start: 20170831, end: 20170904
  54. METHIMAZOLE [Concomitant]
     Active Substance: METHIMAZOLE
     Indication: Thyroiditis
     Dosage: 20 MG, QD
     Route: 048
     Dates: start: 20170913, end: 20171002
  55. EUTHYROX [Concomitant]
     Active Substance: LEVOTHYROXINE SODIUM
     Indication: Product used for unknown indication
     Dosage: 75 ?G, QD
     Route: 048
     Dates: start: 20171004, end: 20171012
  56. EUTHYROX [Concomitant]
     Active Substance: LEVOTHYROXINE SODIUM
     Dosage: 150 MILLIGRAM, QD
     Route: 048
     Dates: start: 20200727, end: 20200822
  57. HYDROCORTISONE BUTYRATE [Concomitant]
     Active Substance: HYDROCORTISONE BUTYRATE
     Indication: Product used for unknown indication
     Dosage: 2 DF= 2 APPLICATIONS, PRN
     Route: 061
     Dates: start: 20171004
  58. OPTIDERM [DEXPANTHENOL;HYDROCORTISONE] [Concomitant]
     Indication: Product used for unknown indication
     Dosage: 1 DF,= 4 APPLICATIONS, PRN
     Route: 061
     Dates: start: 20171004
  59. LEVOTHYROXINE SODIUM [Concomitant]
     Active Substance: LEVOTHYROXINE SODIUM
     Indication: Product used for unknown indication
     Dosage: 150 ?G, UNK
     Route: 048
     Dates: start: 20171013
  60. PERFALGAN [Concomitant]
     Active Substance: ACETAMINOPHEN
     Indication: Product used for unknown indication
     Dosage: 7 G, QD
     Route: 042
     Dates: start: 20171013, end: 20171020
  61. JONOSTERIL [CALCIUM ACETATE;MAGNESIUM ACETATE TETRAHYDRATE;POTASSIUM A [Concomitant]
     Indication: Product used for unknown indication
     Dosage: 1000 UNK, UNK
     Route: 042
     Dates: start: 20171013, end: 20171025
  62. PREDNISOLONE [Concomitant]
     Active Substance: PREDNISOLONE
     Indication: Thyroiditis
     Dosage: 50 MILLIGRAM, QD
     Route: 048
     Dates: start: 20170905, end: 20171002
  63. PREDNISOLONE [Concomitant]
     Active Substance: PREDNISOLONE
     Dosage: 50 MILLIGRAM, QD
     Route: 048
     Dates: start: 20171026, end: 20171215
  64. PREDNISOLONE [Concomitant]
     Active Substance: PREDNISOLONE
     Dosage: 20 MILLIGRAM, QD
     Route: 048
     Dates: start: 20190608, end: 20190610
  65. PREDNISOLONE [Concomitant]
     Active Substance: PREDNISOLONE
     Dosage: 50 MILLIGRAM, QD
     Route: 048
     Dates: start: 20190611, end: 20190715
  66. PREDNISOLONE [Concomitant]
     Active Substance: PREDNISOLONE
     Dosage: 100 MILLIGRAM, QD
     Route: 048
     Dates: start: 20190719, end: 20190726
  67. PREDNISOLONE [Concomitant]
     Active Substance: PREDNISOLONE
     Dosage: 80 MILLIGRAM, QD
     Route: 048
     Dates: start: 20190727, end: 20190729
  68. PREDNISOLONE [Concomitant]
     Active Substance: PREDNISOLONE
     Dosage: 20 MILLIGRAM, QD
     Route: 048
     Dates: start: 20190730, end: 20191119
  69. PREDNISOLONE [Concomitant]
     Active Substance: PREDNISOLONE
     Dosage: 17.5 MILLIGRAM, QD
     Route: 048
     Dates: start: 20191120, end: 20191125
  70. PREDNISOLONE [Concomitant]
     Active Substance: PREDNISOLONE
     Dosage: 15 MILLIGRAM, QD
     Route: 048
     Dates: start: 20191126, end: 20191130
  71. PREDNISOLONE [Concomitant]
     Active Substance: PREDNISOLONE
     Dosage: 12.5 MILLIGRAM, QD
     Route: 048
     Dates: start: 20191201, end: 20191205
  72. PREDNISOLONE [Concomitant]
     Active Substance: PREDNISOLONE
     Dosage: 10 MILLIGRAM, QD
     Route: 048
     Dates: start: 20191206, end: 20191210
  73. PREDNISOLONE [Concomitant]
     Active Substance: PREDNISOLONE
     Dosage: 7.5 MILLIGRAM, QD
     Route: 048
     Dates: start: 20191211, end: 20191217
  74. PREDNISOLONE [Concomitant]
     Active Substance: PREDNISOLONE
     Dosage: 5 MILLIGRAM, QD
     Route: 048
     Dates: start: 20191218, end: 20191224
  75. PREDNISOLONE [Concomitant]
     Active Substance: PREDNISOLONE
     Dosage: 2.5 MILLIGRAM, QD
     Route: 048
     Dates: start: 20191225, end: 20200102
  76. PANTOZOL [Concomitant]
     Active Substance: PANTOPRAZOLE SODIUM
     Indication: Prophylaxis
     Dosage: 20 MG, UNK
     Route: 048
     Dates: start: 20170905
  77. INFLIXIMAB [Concomitant]
     Active Substance: INFLIXIMAB
     Indication: Product used for unknown indication
     Dosage: UNK
  78. PREDNISOLONE [Concomitant]
     Active Substance: PREDNISOLONE
     Indication: Product used for unknown indication
     Dosage: UNK
     Dates: start: 201905
  79. DEXAMETHASONE [Concomitant]
     Active Substance: DEXAMETHASONE
     Indication: Product used for unknown indication
     Dosage: 4 MILLIGRAM, QD
     Route: 048
     Dates: start: 20200727, end: 20200822
  80. CALCIAC [Concomitant]
     Indication: Product used for unknown indication

REACTIONS (10)
  - Thrombocytopenia [Recovered/Resolved]
  - Thyroiditis [Recovered/Resolved]
  - Pyrexia [Unknown]
  - Pancytopenia [Recovered/Resolved]
  - Malignant neoplasm progression [Unknown]
  - General physical health deterioration [Recovered/Resolved]
  - Arthralgia [Recovered/Resolved]
  - Vomiting [Unknown]
  - Dyspnoea [Unknown]
  - Chest pain [Unknown]

NARRATIVE: CASE EVENT DATE: 20170819
